FAERS Safety Report 5468005-X (Version None)
Quarter: 2007Q3

REPORT INFORMATION
  Report Type: 
  Country: None (occurrence: None)
  Receive Date: 20070926
  Receipt Date: 20070917
  Transmission Date: 20080115
  Serious: Yes (Hospitalization)
  Sender: FDA-Public Use
  Company Number: HQWYE208118SEP07

PATIENT
  Age: 55 Year
  Sex: Male

DRUGS (10)
  1. SIROLIMUS [Suspect]
     Indication: IMMUNOSUPPRESSANT DRUG THERAPY
  2. LISINOPRIL [Concomitant]
  3. DILTIAZEM [Concomitant]
  4. PAROXETINE [Concomitant]
  5. LEVOFLOXACIN [Concomitant]
  6. NIACIN [Concomitant]
  7. CALCITRIOL [Concomitant]
  8. NEORAL [Concomitant]
     Indication: IMMUNOSUPPRESSANT DRUG THERAPY
     Dosage: 100 MG AM; 75 MG PM
  9. NEORAL [Concomitant]
  10. ALLOPURINOL [Concomitant]

REACTIONS (1)
  - PULMONARY ALVEOLAR HAEMORRHAGE [None]
